FAERS Safety Report 18022011 (Version 1)
Quarter: 2020Q3

REPORT INFORMATION
  Report Type: Spontaneous
  Country: US (occurrence: US)
  Receive Date: 20200714
  Receipt Date: 20200714
  Transmission Date: 20201103
  Serious: Yes (Other)
  Sender: FDA-Public Use
  Company Number: US-AMGEN-USASP2020110242

PATIENT
  Age: 67 Year
  Sex: Female

DRUGS (1)
  1. REPATHA [Suspect]
     Active Substance: EVOLOCUMAB
     Indication: BLOOD CHOLESTEROL INCREASED
     Dosage: 140 MILLIGRAM
     Route: 065

REACTIONS (12)
  - Seizure [Unknown]
  - Wound infection staphylococcal [Unknown]
  - Sepsis [Unknown]
  - Inner ear disorder [Unknown]
  - Ataxia [Unknown]
  - Pneumonia [Unknown]
  - Wound [Unknown]
  - Fall [Unknown]
  - Dehydration [Unknown]
  - Concussion [Unknown]
  - Device malfunction [Unknown]
  - Migraine [Recovered/Resolved]

NARRATIVE: CASE EVENT DATE: 2018
